FAERS Safety Report 6896855-1 (Version None)
Quarter: 2010Q3

REPORT INFORMATION
  Report Type: 
  Country: None (occurrence: None)
  Receive Date: 20100802
  Receipt Date: 20070225
  Transmission Date: 20110219
  Serious: No
  Sender: FDA-Public Use
  Company Number: US-PFIZER INC-2007015775

PATIENT
  Sex: Female
  Weight: 64.4 kg

DRUGS (4)
  1. LYRICA [Suspect]
     Indication: FIBROMYALGIA
     Dates: start: 20060101
  2. LYRICA [Suspect]
     Indication: SCIATICA
  3. NEXIUM [Concomitant]
  4. SEROQUEL [Concomitant]

REACTIONS (3)
  - FIBROMYALGIA [None]
  - MUSCLE SPASMS [None]
  - SCIATICA [None]
